FAERS Safety Report 12225487 (Version 1)
Quarter: 2016Q1

REPORT INFORMATION
  Report Type: Not Available
  Country: None (occurrence: US)
  Receive Date: 20160331
  Receipt Date: 20160331
  Transmission Date: 20160526
  Serious: No
  Sender: FDA-Public Use
  Company Number: US-AKORN-9090

PATIENT
  Age: 94 Year
  Sex: Female

DRUGS (1)
  1. LIDOCAINE HYDROCHLORIDE JELLY USP, 2% [Suspect]
     Active Substance: LIDOCAINE HYDROCHLORIDE

REACTIONS (1)
  - Pruritus [Unknown]
